FAERS Safety Report 6762314-X (Version None)
Quarter: 2010Q2

REPORT INFORMATION
  Report Type: 
  Country: None (occurrence: None)
  Receive Date: 20100609
  Receipt Date: 20100526
  Transmission Date: 20101027
  Serious: Yes (Other)
  Sender: FDA-Public Use
  Company Number: PHHY2010NZ34510

PATIENT
  Sex: Male

DRUGS (8)
  1. GLEEVEC [Suspect]
     Indication: GASTROINTESTINAL STROMAL TUMOUR
     Dosage: 400 MG, UNK
     Dates: start: 20011201, end: 20021201
  2. GLEEVEC [Suspect]
     Dosage: 800 MG, UNK
     Dates: start: 20021201
  3. SUTENT [Suspect]
     Indication: GASTROINTESTINAL STROMAL TUMOUR
     Dosage: UNK
     Dates: start: 20040701, end: 20100501
  4. LEVOTHYROXINE SODIUM [Concomitant]
  5. PERINDOPRIL [Concomitant]
  6. LOSARTAN POTASSIUM [Concomitant]
  7. BENDROFLUAZIDE [Concomitant]
  8. OMEPRAZOLE [Concomitant]

REACTIONS (9)
  - ATRIAL FIBRILLATION [None]
  - BLOOD CREATININE INCREASED [None]
  - FATIGUE [None]
  - GASTROINTESTINAL STROMAL TUMOUR [None]
  - HYPERTENSION [None]
  - HYPOTHYROIDISM [None]
  - MALIGNANT NEOPLASM PROGRESSION [None]
  - PELVIC MASS [None]
  - PERIORBITAL OEDEMA [None]
